FAERS Safety Report 13262365 (Version 1)
Quarter: 2017Q1

REPORT INFORMATION
  Report Type: Report from Study
  Country: None (occurrence: US)
  Receive Date: 20170223
  Receipt Date: 20170223
  Transmission Date: 20170428
  Serious: Yes (Other)
  Sender: FDA-Public Use
  Company Number: US-ABBVIE-17K-163-1876946-00

PATIENT
  Sex: Male

DRUGS (2)
  1. HUMIRA [Suspect]
     Active Substance: ADALIMUMAB
     Indication: PSORIASIS
  2. HUMIRA [Suspect]
     Active Substance: ADALIMUMAB
     Indication: ANKYLOSING SPONDYLITIS
     Route: 058

REACTIONS (14)
  - Dysarthria [Unknown]
  - Drooling [Unknown]
  - Seizure [Unknown]
  - Brain neoplasm [Unknown]
  - Mouth swelling [Unknown]
  - Memory impairment [Unknown]
  - Hypoaesthesia [Unknown]
  - Headache [Unknown]
  - Deafness unilateral [Unknown]
  - Tongue movement disturbance [Unknown]
  - Pharyngeal oedema [Unknown]
  - Ear pain [Not Recovered/Not Resolved]
  - Eating disorder [Unknown]
  - Hypoacusis [Unknown]

NARRATIVE: CASE EVENT DATE: 2016
